FAERS Safety Report 9801062 (Version 1)
Quarter: 2014Q1

REPORT INFORMATION
  Report Type: Spontaneous
  Country: US (occurrence: US)
  Receive Date: 20140107
  Receipt Date: 20140107
  Transmission Date: 20141002
  Serious: No
  Sender: FDA-Public Use
  Company Number: US-009507513-1401USA001623

PATIENT
  Age: 44 Year
  Sex: Female

DRUGS (4)
  1. CLARITIN-D [Suspect]
     Indication: DYSPNOEA
  2. CLARITIN-D [Suspect]
     Indication: SNEEZING
  3. CLARITIN-D [Suspect]
     Indication: NASOPHARYNGITIS
     Dosage: UNK, UNKNOWN
     Route: 048
  4. CLARITIN-D [Suspect]
     Indication: NASAL CONGESTION

REACTIONS (1)
  - Drug effect decreased [Unknown]
